FAERS Safety Report 11459014 (Version 2)
Quarter: 2015Q4

REPORT INFORMATION
  Report Type: Report from Study
  Country: JP (occurrence: JP)
  Receive Date: 20150904
  Receipt Date: 20151015
  Transmission Date: 20160304
  Serious: Yes (Other)
  Sender: FDA-Public Use
  Company Number: PHJP2012JP004585

PATIENT
  Age: 27 Year
  Sex: Female
  Weight: 61 kg

DRUGS (25)
  1. CLOZARIL [Suspect]
     Active Substance: CLOZAPINE
     Dosage: 100 MG, QD
     Route: 048
     Dates: start: 20110929, end: 20110930
  2. CLOZARIL [Suspect]
     Active Substance: CLOZAPINE
     Dosage: 175 MG, QD
     Route: 048
     Dates: start: 20111007, end: 20111009
  3. FLAVITAN [Concomitant]
     Active Substance: FLAVIN ADENINE DINUCLEOTIDE
     Indication: PROPHYLAXIS
     Dosage: 30 MG, QD
     Route: 048
     Dates: start: 20110920, end: 20111018
  4. LIMAS [Concomitant]
     Active Substance: LITHIUM CARBONATE
     Dosage: 400 MG, QD
     Route: 048
     Dates: start: 20120723
  5. CLOZARIL [Suspect]
     Active Substance: CLOZAPINE
     Indication: SCHIZOPHRENIA, PARANOID TYPE
     Dosage: 12.5 MG, QD
     Route: 048
     Dates: start: 20110920, end: 20110920
  6. CLOZARIL [Suspect]
     Active Substance: CLOZAPINE
     Dosage: 25 MG, QD
     Route: 048
     Dates: start: 20110921, end: 20110923
  7. CLOZARIL [Suspect]
     Active Substance: CLOZAPINE
     Dosage: 250 MG, QD
     Route: 048
     Dates: start: 20111116, end: 20111208
  8. CLOZARIL [Suspect]
     Active Substance: CLOZAPINE
     Dosage: 200 MG, QD
     Route: 048
     Dates: start: 20111214
  9. DEPAKENE [Concomitant]
     Active Substance: VALPROIC ACID
     Indication: SCHIZOPHRENIA, PARANOID TYPE
     Dosage: 1200 MG, QD
     Route: 048
     Dates: start: 20110920
  10. CLOZARIL [Suspect]
     Active Substance: CLOZAPINE
     Dosage: 125 MG, QD
     Route: 048
     Dates: start: 20111001, end: 20111003
  11. RIVOTRIL [Concomitant]
     Active Substance: CLONAZEPAM
     Dosage: 2 MG, QD
     Route: 048
     Dates: start: 20120321
  12. LIMAS [Concomitant]
     Active Substance: LITHIUM CARBONATE
     Dosage: 200 MG, QD
     Route: 048
     Dates: start: 20111224
  13. LIMAS [Concomitant]
     Active Substance: LITHIUM CARBONATE
     Dosage: 200 MG, QD
     Route: 048
     Dates: start: 20120321, end: 20120722
  14. RISPERDAL [Concomitant]
     Active Substance: RISPERIDONE
     Indication: SCHIZOPHRENIA, PARANOID TYPE
     Dosage: UNK, PRN
     Route: 048
     Dates: start: 20110920
  15. CLOZARIL [Suspect]
     Active Substance: CLOZAPINE
     Dosage: 75 MG, QD
     Route: 048
     Dates: start: 20110927, end: 20110928
  16. CLOZARIL [Suspect]
     Active Substance: CLOZAPINE
     Dosage: 200 MG, QD
     Route: 048
     Dates: start: 20111010, end: 20111108
  17. RISPERDAL [Concomitant]
     Active Substance: RISPERIDONE
     Dosage: UNK, PRN
     Route: 048
     Dates: start: 20120321, end: 20120325
  18. RIVOTRIL [Concomitant]
     Active Substance: CLONAZEPAM
     Indication: SCHIZOPHRENIA, PARANOID TYPE
     Dosage: 2 MG, QD
     Route: 048
     Dates: start: 20110920
  19. CLOZARIL [Suspect]
     Active Substance: CLOZAPINE
     Dosage: 150 MG, QD
     Route: 048
     Dates: start: 20111004, end: 20111006
  20. PYDOXAL [Concomitant]
     Active Substance: PYRIDOXAL
     Indication: PROPHYLAXIS
     Dosage: 30 MG, QD
     Route: 048
     Dates: start: 20110920, end: 20111018
  21. LIMAS [Concomitant]
     Active Substance: LITHIUM CARBONATE
     Dosage: 300 MG, QD
     Route: 048
     Dates: start: 20111129, end: 20111223
  22. CLOZARIL [Suspect]
     Active Substance: CLOZAPINE
     Dosage: 225 MG, QD
     Route: 048
     Dates: start: 20111109, end: 20111115
  23. CLOZARIL [Suspect]
     Active Substance: CLOZAPINE
     Dosage: 225 MG, QD
     Route: 048
     Dates: start: 20111209, end: 20111213
  24. CLOZARIL [Suspect]
     Active Substance: CLOZAPINE
     Dosage: 50 MG, QD
     Route: 048
     Dates: start: 20110924, end: 20110926
  25. LIMAS [Concomitant]
     Active Substance: LITHIUM CARBONATE
     Indication: MANIA
     Dosage: 100 MG, QD
     Route: 048
     Dates: start: 20111102, end: 20111128

REACTIONS (13)
  - Abdominal distension [Recovered/Resolved]
  - Monocyte percentage increased [Recovered/Resolved]
  - Pyrexia [Recovered/Resolved]
  - Cytopenia [Recovered/Resolved]
  - Constipation [Not Recovered/Not Resolved]
  - Neutrophil percentage increased [Recovered/Resolved]
  - Monocyte percentage increased [Recovered/Resolved]
  - Body temperature decreased [Recovered/Resolved]
  - Salivary hypersecretion [Recovered/Resolved]
  - Salivary hypersecretion [Recovered/Resolved]
  - Tremor [Recovering/Resolving]
  - Monocyte percentage increased [Unknown]
  - White blood cell count decreased [Recovered/Resolved]

NARRATIVE: CASE EVENT DATE: 20110928
